FAERS Safety Report 8987306 (Version 1)
Quarter: 2012Q4

REPORT INFORMATION
  Report Type: Report from Study
  Country: CA (occurrence: CA)
  Receive Date: 20121226
  Receipt Date: 20121226
  Transmission Date: 20130627
  Serious: Yes (Hospitalization)
  Sender: FDA-Public Use
  Company Number: CA-ROCHE-1168205

PATIENT
  Sex: Male
  Weight: 79 kg

DRUGS (6)
  1. TOCILIZUMAB [Suspect]
     Indication: RHEUMATOID ARTHRITIS
     Route: 042
     Dates: start: 20111026
  2. KINERET [Concomitant]
  3. INDOCID [Concomitant]
  4. PREDNISONE [Concomitant]
  5. ALENDRONATE [Concomitant]
  6. OMEPRAZOLE [Concomitant]

REACTIONS (1)
  - Joint destruction [Recovered/Resolved]
